FAERS Safety Report 9394046 (Version 1)
Quarter: 2013Q3

REPORT INFORMATION
  Report Type: Report from Study
  Country: FR (occurrence: FR)
  Receive Date: 20130710
  Receipt Date: 20130710
  Transmission Date: 20140515
  Serious: Yes (Death, Hospitalization)
  Sender: FDA-Public Use
  Company Number: FR-ELI_LILLY_AND_COMPANY-FR201306001748

PATIENT
  Age: 60 Year
  Sex: Male
  Weight: 77 kg

DRUGS (5)
  1. PEMETREXED [Suspect]
     Indication: LUNG NEOPLASM MALIGNANT
     Dosage: 965 MG, EVERY 3 WEEKS
     Route: 042
     Dates: start: 20130123, end: 20130212
  2. CISPLATIN [Suspect]
  3. FOLIC ACID [Concomitant]
     Indication: PREMEDICATION
     Dosage: UNK
     Dates: start: 20120123, end: 20130212
  4. VITAMIN B12 [Concomitant]
     Indication: PREMEDICATION
     Dosage: UNK
     Dates: start: 20130123, end: 20130212
  5. DEXAMETHASONE [Concomitant]
     Indication: PREMEDICATION
     Dosage: UNK
     Dates: start: 20130123, end: 20130212

REACTIONS (3)
  - Anaemia [Fatal]
  - Pancytopenia [Recovered/Resolved]
  - Infection [Recovered/Resolved]
